FAERS Safety Report 5728500-2 (Version None)
Quarter: 2008Q2

REPORT INFORMATION
  Report Type: 
  Country: None (occurrence: None)
  Receive Date: 20080502
  Receipt Date: 20080502
  Transmission Date: 20081010
  Serious: Yes (Other)
  Sender: FDA-Public Use
  Company Number: None

PATIENT
  Age: 38 Year
  Sex: Female
  Weight: 90.7194 kg

DRUGS (1)
  1. ZOLPIDEM [Suspect]
     Indication: INSOMNIA
     Dosage: ONE TABLET  AT BEDTIME PRN PO
     Route: 048
     Dates: start: 20080213, end: 20080430

REACTIONS (1)
  - ABNORMAL SLEEP-RELATED EVENT [None]
